FAERS Safety Report 14107483 (Version 1)
Quarter: 2017Q4

REPORT INFORMATION
  Report Type: Spontaneous
  Country: US (occurrence: US)
  Receive Date: 20171019
  Receipt Date: 20171019
  Transmission Date: 20180321
  Serious: Yes (Hospitalization)
  Sender: FDA-Public Use
  Company Number: US-NEUROCRINE BIOSCIENCES INC.-2017NBI00645

PATIENT
  Sex: Female

DRUGS (21)
  1. XYZAL [Concomitant]
     Active Substance: LEVOCETIRIZINE DIHYDROCHLORIDE
  2. BUPROPION. [Concomitant]
     Active Substance: BUPROPION
     Dosage: EVERY MORNING WITH FOOD
  3. OSCAL [Concomitant]
     Active Substance: CALCIUM CARBONATE
     Dosage: AS NEEDED
  4. PROTONIX [Concomitant]
     Active Substance: PANTOPRAZOLE SODIUM
  5. SYNTHROID [Concomitant]
     Active Substance: LEVOTHYROXINE SODIUM
  6. ZOFRAN [Concomitant]
     Active Substance: ONDANSETRON HYDROCHLORIDE
  7. VISTARIL [Concomitant]
     Active Substance: HYDROXYZINE PAMOATE
  8. NASONEX [Concomitant]
     Active Substance: MOMETASONE FUROATE
  9. MORPHINE [Concomitant]
     Active Substance: MORPHINE
  10. LINZESS [Concomitant]
     Active Substance: LINACLOTIDE
  11. AUSTEDO [Concomitant]
     Active Substance: DEUTETRABENAZINE
  12. ZANTAC [Concomitant]
     Active Substance: RANITIDINE HYDROCHLORIDE
  13. TRAZODONE [Concomitant]
     Active Substance: TRAZODONE HYDROCHLORIDE
     Indication: INSOMNIA
     Dosage: AT BED TIME
  14. PROAIR HFA [Concomitant]
     Active Substance: ALBUTEROL SULFATE
  15. INGREZZA [Suspect]
     Active Substance: VALBENAZINE
     Indication: TARDIVE DYSKINESIA
  16. OXYBUTYNIN. [Concomitant]
     Active Substance: OXYBUTYNIN CHLORIDE
  17. LITHOBID CR [Concomitant]
     Dosage: AT BEDTIME
     Route: 048
  18. PATADAY [Concomitant]
     Active Substance: OLOPATADINE HYDROCHLORIDE
  19. SYMBICORT [Concomitant]
     Active Substance: BUDESONIDE\FORMOTEROL FUMARATE DIHYDRATE
     Dosage: 80-4.5 MCG ; 2 PUFFS INTO THE LUNGS 2 TIMES DAILY
  20. PROPRANOLOL [Concomitant]
     Active Substance: PROPRANOLOL HYDROCHLORIDE
  21. LAMOTRIGINE. [Concomitant]
     Active Substance: LAMOTRIGINE

REACTIONS (3)
  - Aspiration [Unknown]
  - Cognitive disorder [Recovered/Resolved]
  - Pneumonia [Unknown]
